FAERS Safety Report 13948832 (Version 1)
Quarter: 2017Q3

REPORT INFORMATION
  Report Type: Spontaneous
  Country: US (occurrence: US)
  Receive Date: 20170908
  Receipt Date: 20170908
  Transmission Date: 20171128
  Serious: Yes (Hospitalization, Other)
  Sender: FDA-Public Use
  Company Number: US-JNJFOC-20170826463

PATIENT
  Sex: Male
  Weight: 75.3 kg

DRUGS (1)
  1. XARELTO [Suspect]
     Active Substance: RIVAROXABAN
     Indication: PRODUCT USED FOR UNKNOWN INDICATION
     Route: 048

REACTIONS (10)
  - Peripheral swelling [Unknown]
  - Increased tendency to bruise [Unknown]
  - Fatigue [Unknown]
  - Haemorrhagic diathesis [Unknown]
  - Malaise [Unknown]
  - Ecchymosis [Unknown]
  - Dyspnoea exertional [Unknown]
  - Pneumonia [Unknown]
  - Dizziness [Unknown]
  - Blood thyroid stimulating hormone increased [Unknown]
